FAERS Safety Report 6031809-9 (Version None)
Quarter: 2008Q4

REPORT INFORMATION
  Report Type: 
  Country: None (occurrence: None)
  Receive Date: 20081224
  Receipt Date: 20080906
  Transmission Date: 20090506
  Serious: No
  Sender: FDA-Public Use
  Company Number: 2008PV036574

PATIENT
  Age: 74 Year
  Sex: Female

DRUGS (7)
  1. SYMLIN [Suspect]
     Indication: TYPE 2 DIABETES MELLITUS
     Dosage: 60 MCG; BID; SC, 45 MCG; TID; SC, 120 MCG; TID; SC
     Route: 058
     Dates: start: 20080822, end: 20080801
  2. SYMLIN [Suspect]
     Indication: TYPE 2 DIABETES MELLITUS
     Dosage: 60 MCG; BID; SC, 45 MCG; TID; SC, 120 MCG; TID; SC
     Route: 058
     Dates: start: 20080801, end: 20080903
  3. SYMLIN [Suspect]
     Indication: TYPE 2 DIABETES MELLITUS
     Dosage: 60 MCG; BID; SC, 45 MCG; TID; SC, 120 MCG; TID; SC
     Route: 058
     Dates: start: 20080904
  4. LANTUS [Concomitant]
  5. PRILOSEC [Concomitant]
  6. BYETTA [Concomitant]
  7. GLIPIZIDE [Concomitant]

REACTIONS (1)
  - BLOOD GLUCOSE INCREASED [None]
